FAERS Safety Report 6196959-5 (Version None)
Quarter: 2009Q2

REPORT INFORMATION
  Report Type: 
  Country: None (occurrence: None)
  Receive Date: 20090518
  Receipt Date: 20090518
  Transmission Date: 20091009
  Serious: Yes (Hospitalization)
  Sender: FDA-Public Use
  Company Number: None

PATIENT
  Age: 59 Year
  Sex: Male
  Weight: 66.8 kg

DRUGS (2)
  1. CETUXIMAB [Suspect]
     Indication: TONGUE NEOPLASM MALIGNANT STAGE UNSPECIFIED
     Dosage: 250MG/M2
     Dates: start: 20090413, end: 20090514
  2. CISPLATIN [Suspect]
     Dosage: 100 MG/M2
     Dates: start: 20090413, end: 20090514

REACTIONS (4)
  - HYPOPHAGIA [None]
  - HYPOTENSION [None]
  - STOMATITIS [None]
  - WEIGHT DECREASED [None]
